FAERS Safety Report 7034738-7 (Version None)
Quarter: 2010Q4

REPORT INFORMATION
  Report Type: 
  Country: None (occurrence: None)
  Receive Date: 20101008
  Receipt Date: 20100928
  Transmission Date: 20110411
  Serious: Yes (Hospitalization)
  Sender: FDA-Public Use
  Company Number: PHHY2010CA64959

PATIENT
  Sex: Female

DRUGS (1)
  1. ACLASTA [Suspect]
     Dosage: 5 MG / 100 ML, ONCE A YEAR
     Route: 042
     Dates: start: 20091020

REACTIONS (2)
  - INTESTINAL GANGRENE [None]
  - SMALL INTESTINAL RESECTION [None]
